FAERS Safety Report 20023506 (Version 2)
Quarter: 2021Q4

REPORT INFORMATION
  Report Type: Spontaneous
  Country: IE (occurrence: IE)
  Receive Date: 20211102
  Receipt Date: 20211116
  Transmission Date: 20220303
  Serious: Yes (Hospitalization)
  Sender: FDA-Public Use
  Company Number: IE-BAXTER-2021BAX033864

PATIENT
  Age: 74 Year
  Sex: Male

DRUGS (2)
  1. SODIUM CHLORIDE [Suspect]
     Active Substance: SODIUM CHLORIDE
     Indication: Medication dilution
     Dosage: CEFTRIAXONE 2000 MG IN 50 ML NACL 0.9% OVER 30 MINUTES IN AN SV100
     Route: 065
     Dates: start: 20211021, end: 20211024
  2. CEFTRIAXONE [Suspect]
     Active Substance: CEFTRIAXONE
     Indication: Cardiac infection
     Dosage: CEFTRIAXONE 2000 MG IN 50 ML NACL 0.9% OVER 30 MINUTES IN AN SV100
     Route: 065
     Dates: start: 20211021, end: 20211024

REACTIONS (2)
  - Diarrhoea [Recovered/Resolved]
  - Pyrexia [Recovered/Resolved]

NARRATIVE: CASE EVENT DATE: 20211023
